FAERS Safety Report 5310860-8 (Version None)
Quarter: 2007Q1

REPORT INFORMATION
  Report Type: 
  Country: None (occurrence: None)
  Receive Date: 20070201
  Receipt Date: 20070117
  Transmission Date: 20070707
  Serious: Yes (Hospitalization)
  Sender: FDA-Public Use
  Company Number: US-2006-010639

PATIENT
  Age: 34 Year
  Sex: Female
  Weight: 91.6 kg

DRUGS (4)
  1. MIRENA [Suspect]
     Indication: CONTRACEPTION
     Dosage: 20 UG/DAY, CONT, INTRA-UTERINE
     Route: 015
     Dates: start: 20051222, end: 20060413
  2. SYNTHROID [Concomitant]
  3. ZOCOR [Concomitant]
  4. BUMEX [Concomitant]

REACTIONS (5)
  - ABDOMINAL ADHESIONS [None]
  - COMPLICATION OF DEVICE INSERTION [None]
  - PELVIC PERITONEAL ADHESIONS [None]
  - PROCEDURAL PAIN [None]
  - UTERINE PERFORATION [None]
